FAERS Safety Report 7094613 (Version 12)
Quarter: 2014Q3

REPORT INFORMATION
  Report Type: Report from Study
  Country: TW (occurrence: TW)
  Receive Date: 20090824
  Receipt Date: 20140724
  Transmission Date: 20150326
  Serious: Yes (Death, Hospitalization)
  Sender: FDA-Public Use
  Company Number: PHHO2009TW10035

PATIENT
  Age: 50 Year
  Sex: Male
  Weight: 53 kg

DRUGS (3)
  1. EVEROLIMUS [Suspect]
     Active Substance: EVEROLIMUS
     Indication: PANCREATIC NEUROENDOCRINE TUMOUR
     Dosage: UNK
     Route: 048
     Dates: start: 20090114, end: 20090629
  2. NOVOMIX [Concomitant]
     Active Substance: INSULIN ASPART
     Indication: TYPE 2 DIABETES MELLITUS
  3. TAKEPRON [Concomitant]
     Active Substance: LANSOPRAZOLE
     Indication: PEPTIC ULCER

REACTIONS (5)
  - Acute hepatic failure [Fatal]
  - Hepatic encephalopathy [Fatal]
  - Liver function test abnormal [Fatal]
  - Hepatic necrosis [Fatal]
  - Hepatitis B [Fatal]

NARRATIVE: CASE EVENT DATE: 20090506
